FAERS Safety Report 11777951 (Version 1)
Quarter: 2015Q4

REPORT INFORMATION
  Report Type: Spontaneous
  Country: US (occurrence: US)
  Receive Date: 20151125
  Receipt Date: 20151125
  Transmission Date: 20160304
  Serious: Yes (Life-Threatening, Other)
  Sender: FDA-Public Use
  Company Number: PHHY2015US151295

PATIENT
  Age: 58 Year
  Sex: Female

DRUGS (2)
  1. LIDOCAINE. [Suspect]
     Active Substance: LIDOCAINE
     Indication: ANAESTHESIA
     Dosage: 50 MG, UNK
     Route: 042
  2. BENZOCAINE. [Suspect]
     Active Substance: BENZOCAINE
     Indication: TOOTHACHE
     Route: 061

REACTIONS (1)
  - Methaemoglobinaemia [Recovered/Resolved]
